FAERS Safety Report 6235515-7 (Version None)
Quarter: 2009Q2

REPORT INFORMATION
  Report Type: 
  Country: None (occurrence: None)
  Receive Date: 20090618
  Receipt Date: 20080819
  Transmission Date: 20091009
  Serious: No
  Sender: FDA-Public Use
  Company Number: US-ASTRAZENECA-2008UW14178

PATIENT
  Age: 75 Year
  Sex: Female
  Weight: 53.5 kg

DRUGS (6)
  1. RHINOCORT [Suspect]
     Indication: POSTNASAL DRIP
     Route: 045
  2. IRON [Concomitant]
  3. CALCIUM [Concomitant]
  4. ADVAIR HFA [Concomitant]
  5. SYNTHROID [Concomitant]
  6. THEOPHYLLINE [Concomitant]

REACTIONS (1)
  - VERTIGO POSITIONAL [None]
